FAERS Safety Report 13207375 (Version 1)
Quarter: 2017Q1

REPORT INFORMATION
  Report Type: Spontaneous
  Country: US (occurrence: US)
  Receive Date: 20170209
  Receipt Date: 20170209
  Transmission Date: 20170428
  Serious: No
  Sender: FDA-Public Use
  Company Number: US-SA-2017SA001264

PATIENT
  Age: 81 Year
  Sex: Female

DRUGS (14)
  1. CARVEDILOL. [Concomitant]
     Active Substance: CARVEDILOL
     Dosage: STRENTH: 6.25 MG
  2. DOXEPIN HYDROCHLORIDE. [Concomitant]
     Active Substance: DOXEPIN HYDROCHLORIDE
     Dosage: STRENGTH: 10 MG
  3. ELIQUIS [Concomitant]
     Active Substance: APIXABAN
     Dosage: STRENGTH: 5 MG
  4. WARFARIN [Concomitant]
     Active Substance: WARFARIN
     Dosage: 10 MG
  5. GABAPENTIN. [Concomitant]
     Active Substance: GABAPENTIN
     Dosage: STRENTH: 100 MG
  6. HYDROCODONE [Concomitant]
     Active Substance: HYDROCODONE
  7. TRAMADOL HYDROCHLORIDE. [Concomitant]
     Active Substance: TRAMADOL HYDROCHLORIDE
     Dosage: 50 MG
  8. CHLORTHALIDONE. [Concomitant]
     Active Substance: CHLORTHALIDONE
     Dosage: STRENGTH:25 MG
  9. CELEBREX [Concomitant]
     Active Substance: CELECOXIB
     Dosage: STRENGTH: 100 MG
  10. ALIROCUMAB PREFILLED SYRINGE [Concomitant]
     Indication: HYPERLIPIDAEMIA
     Dates: start: 20160511
  11. PRALUENT [Suspect]
     Active Substance: ALIROCUMAB
     Indication: HYPERLIPIDAEMIA
     Route: 065
     Dates: start: 20160511
  12. CARBAMAZEPINE. [Concomitant]
     Active Substance: CARBAMAZEPINE
     Dosage: 200 MG
  13. ENOXAPARIN [Concomitant]
     Active Substance: ENOXAPARIN
     Dosage: STRENGTH: 80/0.8 ML
  14. FUROSEMIDE. [Concomitant]
     Active Substance: FUROSEMIDE
     Dosage: STRENGTH: 40 MG

REACTIONS (1)
  - Pain in extremity [Not Recovered/Not Resolved]
